FAERS Safety Report 8924956 (Version 1)
Quarter: 2012Q4

REPORT INFORMATION
  Report Type: Spontaneous
  Country: US (occurrence: None)
  Receive Date: 20121126
  Receipt Date: 20121126
  Transmission Date: 20130627
  Serious: Yes (Life-Threatening, Other)
  Sender: FDA-Public Use
  Company Number: None

PATIENT
  Age: 22 Year
  Sex: Male
  Weight: 54.43 kg

DRUGS (5)
  1. SEROQUEL XR [Suspect]
     Indication: MOOD DISORDER NOS
     Route: 048
     Dates: start: 20121108, end: 20121109
  2. SEROQUEL XR [Suspect]
     Indication: INSOMNIA
     Route: 048
     Dates: start: 20121108, end: 20121109
  3. SEROQUEL XR [Suspect]
     Indication: MOOD DISORDER NOS
     Route: 048
     Dates: start: 20120926, end: 20121111
  4. SEROQUEL XR [Suspect]
     Indication: INSOMNIA
     Route: 048
     Dates: start: 20120926, end: 20121111
  5. GABAPENTIN [Suspect]

REACTIONS (10)
  - Nightmare [None]
  - Restless legs syndrome [None]
  - Sleep disorder [None]
  - Substance-induced psychotic disorder [None]
  - Memory impairment [None]
  - Aggression [None]
  - Self injurious behaviour [None]
  - Head banging [None]
  - Mental disorder [None]
  - Off label use [None]
